FAERS Safety Report 7760243-6 (Version None)
Quarter: 2011Q3

REPORT INFORMATION
  Report Type: 
  Country: None (occurrence: None)
  Receive Date: 20110919
  Receipt Date: 20110909
  Transmission Date: 20111222
  Serious: Yes (Hospitalization, Disabling)
  Sender: FDA-Public Use
  Company Number: JP-GLAXOSMITHKLINE-B0662376A

PATIENT
  Sex: Female

DRUGS (11)
  1. SERETIDE (50MCG/500MCG) [Suspect]
     Indication: ASTHMA
     Dosage: 1000MCG PER DAY
     Route: 055
     Dates: start: 20080709
  2. SOLU-MEDROL [Concomitant]
     Dosage: 1G PER DAY
     Route: 042
     Dates: start: 20081002, end: 20081004
  3. SINGULAIR [Suspect]
     Indication: ASTHMA
     Dosage: 10MG PER DAY
     Route: 048
     Dates: end: 20090316
  4. CELESTAMINE TAB [Concomitant]
     Indication: ASTHMA
     Dosage: 2IUAX PER DAY
     Route: 048
     Dates: end: 20081002
  5. ALLOPURINOL [Suspect]
     Indication: GOUT
     Dosage: 50MG PER DAY
     Route: 048
     Dates: start: 20090121, end: 20090316
  6. THEOLONG [Concomitant]
     Indication: ASTHMA
     Dosage: 400MG PER DAY
     Route: 048
     Dates: end: 20090316
  7. LIPITOR [Concomitant]
     Indication: HYPERCHOLESTEROLAEMIA
     Route: 048
  8. ALENDRONATE SODIUM [Concomitant]
     Route: 048
     Dates: start: 20081027
  9. LANSOPRAZOLE [Concomitant]
     Indication: GASTROOESOPHAGEAL REFLUX DISEASE
     Dosage: 15MG PER DAY
     Route: 048
     Dates: start: 20090319
  10. IMURAN [Suspect]
     Indication: ALLERGIC GRANULOMATOUS ANGIITIS
     Dosage: 50MG PER DAY
     Route: 048
     Dates: start: 20081010, end: 20081024
  11. IMURAN [Suspect]
     Dosage: 75MG PER DAY
     Route: 048
     Dates: start: 20081025, end: 20090316

REACTIONS (4)
  - LEUKOPENIA [None]
  - MENINGITIS CRYPTOCOCCAL [None]
  - ALLERGIC GRANULOMATOUS ANGIITIS [None]
  - ANAEMIA [None]
